FAERS Safety Report 4636648-9 (Version None)
Quarter: 2005Q2

REPORT INFORMATION
  Report Type: 
  Country: None (occurrence: None)
  Receive Date: 20050414
  Receipt Date: 20050401
  Transmission Date: 20051028
  Serious: Yes (Hospitalization)
  Sender: FDA-Public Use
  Company Number: 2004UW20861

PATIENT
  Age: 57 Year
  Sex: Male

DRUGS (2)
  1. LOSEC [Suspect]
     Indication: GASTROOESOPHAGEAL REFLUX DISEASE
     Dates: start: 19870101, end: 19930101
  2. SUCRALFATE [Concomitant]

REACTIONS (3)
  - HAEMORRHAGE [None]
  - MALNUTRITION [None]
  - RECTAL HAEMORRHAGE [None]
